FAERS Safety Report 9132770 (Version 2)
Quarter: 2013Q1

REPORT INFORMATION
  Report Type: Report from Study
  Country: KR (occurrence: KR)
  Receive Date: 20130301
  Receipt Date: 20130314
  Transmission Date: 20140127
  Serious: Yes (Death)
  Sender: FDA-Public Use
  Company Number: KR-ROCHE-1195498

PATIENT
  Sex: 0

DRUGS (1)
  1. ALTEPLASE [Suspect]
     Indication: ISCHAEMIC STROKE
     Route: 042

REACTIONS (5)
  - Cerebrovascular accident [Fatal]
  - Brain stem infarction [Fatal]
  - Cerebellar infarction [Fatal]
  - Cerebral infarction [Fatal]
  - Cerebral artery occlusion [Fatal]
